FAERS Safety Report 7904770-7 (Version None)
Quarter: 2011Q4

REPORT INFORMATION
  Report Type: 
  Country: None (occurrence: None)
  Receive Date: 20111109
  Receipt Date: 20111031
  Transmission Date: 20120403
  Serious: Yes (Hospitalization, Other)
  Sender: FDA-Public Use
  Company Number: US-BAYER-201029612NA

PATIENT
  Age: 31 Year
  Sex: Female
  Weight: 45.805 kg

DRUGS (3)
  1. YAZ [Suspect]
     Indication: PRODUCT USED FOR UNKNOWN INDICATION
     Dosage: 1 DF, QD
     Route: 048
     Dates: start: 20071201, end: 20080801
  2. FEXOFENADINE [Concomitant]
     Dosage: 180 MG
     Route: 048
     Dates: start: 20060113
  3. ALLEGRA [Concomitant]

REACTIONS (7)
  - OEDEMA PERIPHERAL [None]
  - ANXIETY [None]
  - PULMONARY EMBOLISM [None]
  - ADJUSTMENT DISORDER WITH DISTURBANCE OF CONDUCT [None]
  - DEEP VEIN THROMBOSIS [None]
  - DEPRESSION [None]
  - ABASIA [None]
